FAERS Safety Report 16142561 (Version 2)
Quarter: 2019Q2

REPORT INFORMATION
  Report Type: Spontaneous
  Country: US (occurrence: US)
  Receive Date: 20190401
  Receipt Date: 20190514
  Transmission Date: 20190711
  Serious: Yes (Other)
  Sender: FDA-Public Use
  Company Number: US-GILEAD-2019-0399108

PATIENT
  Age: 57 Year
  Sex: Female
  Weight: 84 kg

DRUGS (1)
  1. YESCARTA [Suspect]
     Active Substance: AXICABTAGENE CILOLEUCEL
     Indication: DIFFUSE LARGE B-CELL LYMPHOMA
     Dosage: UNK
     Route: 042
     Dates: start: 20190305, end: 20190305

REACTIONS (10)
  - Pain [Not Recovered/Not Resolved]
  - BK virus infection [Unknown]
  - Respiratory syncytial virus infection [Recovered/Resolved]
  - Hypogammaglobulinaemia [Unknown]
  - Dizziness [Not Recovered/Not Resolved]
  - Neurotoxicity [Unknown]
  - Bladder spasm [Not Recovered/Not Resolved]
  - Cytopenia [Unknown]
  - Adrenal insufficiency [Not Recovered/Not Resolved]
  - Cytokine release syndrome [Unknown]

NARRATIVE: CASE EVENT DATE: 20190317
